FAERS Safety Report 18214233 (Version 1)
Quarter: 2020Q3

REPORT INFORMATION
  Report Type: Spontaneous
  Country: KR (occurrence: KR)
  Receive Date: 20200831
  Receipt Date: 20200831
  Transmission Date: 20201103
  Serious: Yes (Death, Hospitalization)
  Sender: FDA-Public Use
  Company Number: KR-ALLERGAN-2033167US

PATIENT
  Sex: Female

DRUGS (1)
  1. RISEDRONATE SODIUM UNK [Suspect]
     Active Substance: RISEDRONATE SODIUM
     Indication: OSTEOPOROSIS
     Dosage: 35 MG, Q WEEK
     Route: 048

REACTIONS (2)
  - Osteonecrosis of jaw [Recovered/Resolved with Sequelae]
  - Meningoencephalitis bacterial [Fatal]

NARRATIVE: CASE EVENT DATE: 201812
